FAERS Safety Report 8158132-0 (Version None)
Quarter: 2012Q1

REPORT INFORMATION
  Report Type: 
  Country: None (occurrence: None)
  Receive Date: 20120222
  Receipt Date: 20120214
  Transmission Date: 20120608
  Serious: Yes (Congenital Anomaly)
  Sender: FDA-Public Use
  Company Number: PHHY2012GB012633

PATIENT
  Sex: Female

DRUGS (5)
  1. MORPHINE SULFATE [Concomitant]
     Indication: DIABETIC NEUROPATHY
     Dosage: 40 MG, BID
     Route: 064
     Dates: start: 20111014
  2. TOPIRAMATE [Concomitant]
     Indication: DIABETIC NEUROPATHY
     Dosage: 25 MG, QD
     Route: 064
     Dates: start: 20110217, end: 20110222
  3. GABAPENTIN [Suspect]
     Indication: DIABETIC NEUROPATHY
     Dosage: 1200 MG, TID
     Route: 064
     Dates: end: 20110314
  4. DULOXETIME HYDROCHLORIDE [Concomitant]
     Indication: DIABETIC NEUROPATHY
     Dosage: 60 MG, QD
     Route: 064
     Dates: end: 20110314
  5. METOCLOPRAMIDE [Concomitant]
     Indication: IMPAIRED GASTRIC EMPTYING
     Dosage: 10 MG, QD
     Route: 064
     Dates: start: 20100101, end: 20110314

REACTIONS (2)
  - FOETAL EXPOSURE DURING PREGNANCY [None]
  - HAEMANGIOMA OF SKIN [None]
